FAERS Safety Report 8402795-9 (Version None)
Quarter: 2012Q2

REPORT INFORMATION
  Report Type: 
  Country: None (occurrence: None)
  Receive Date: 20120601
  Receipt Date: 20120524
  Transmission Date: 20120825
  Serious: Yes (Hospitalization)
  Sender: FDA-Public Use
  Company Number: DE-ROCHE-1068170

PATIENT
  Sex: Female

DRUGS (17)
  1. NEBIVOLOL [Concomitant]
     Indication: ATRIAL FIBRILLATION
     Dates: start: 20120412
  2. MABTHERA [Suspect]
     Indication: B-CELL LYMPHOMA
     Route: 042
     Dates: start: 20120425
  3. DOXORUBICIN HCL [Suspect]
     Indication: B-CELL LYMPHOMA
     Route: 042
     Dates: start: 20120426
  4. TIOTROPIUM BROMIDE [Concomitant]
     Indication: CHRONIC OBSTRUCTIVE PULMONARY DISEASE
     Dates: start: 20120412
  5. CYCLOPHOSPHAMIDE [Suspect]
     Indication: B-CELL LYMPHOMA
     Route: 042
     Dates: start: 20120426
  6. PREDNISOLONE [Suspect]
     Indication: B-CELL LYMPHOMA
     Dates: start: 20120426, end: 20120430
  7. ACETYLSALICYLIC ACID SRT [Concomitant]
     Indication: ARTERIOSCLEROSIS CORONARY ARTERY
     Dates: start: 20120412
  8. RAMIPRIL [Concomitant]
     Indication: HYPERTENSION
     Dates: start: 20120412
  9. ACYCLOVIR [Concomitant]
     Indication: PROPHYLAXIS
     Dates: start: 20120412
  10. PANTOPRAZOLE [Concomitant]
     Dates: start: 20120412
  11. VINCRISTINE [Suspect]
     Indication: B-CELL LYMPHOMA
     Route: 042
     Dates: start: 20120426
  12. LEVOTHYROXINE SODIUM [Concomitant]
     Indication: HYPOTHYROIDISM
     Dates: start: 20120412
  13. TRIMETHOPRIM + SULFAMETHOXAZOLE [Concomitant]
     Indication: PROPHYLAXIS
     Dates: start: 20120412
  14. ENOXAPARIN NATRIUM [Concomitant]
     Indication: ATRIAL FIBRILLATION
     Dates: start: 20120412
  15. SIMVASTATIN [Concomitant]
     Indication: ARTERIOSCLEROSIS CORONARY ARTERY
     Dates: start: 20120412
  16. TORSEMIDE [Concomitant]
     Indication: HYPERTENSION
     Dates: start: 20120412
  17. NEULASTA [Suspect]
     Indication: B-CELL LYMPHOMA
     Route: 058
     Dates: start: 20120429

REACTIONS (2)
  - THROMBOCYTOPENIA [None]
  - SYNCOPE [None]
